FAERS Safety Report 10589832 (Version 1)
Quarter: 2014Q4

REPORT INFORMATION
  Report Type: Spontaneous
  Country: US (occurrence: None)
  Receive Date: 20141117
  Receipt Date: 20141117
  Transmission Date: 20150529
  Serious: No
  Sender: FDA-Public Use
  Company Number: None

PATIENT
  Age: 56 Year
  Sex: Female
  Weight: 58.97 kg

DRUGS (3)
  1. DULOXETINE [Suspect]
     Active Substance: DULOXETINE
     Indication: DEPRESSION
     Dosage: 1 AT BEDTIME
     Route: 048
     Dates: start: 20141001
  2. DULOXETINE [Suspect]
     Active Substance: DULOXETINE
     Indication: PAIN
     Dosage: 1 AT BEDTIME
     Route: 048
     Dates: start: 20141001
  3. DULOXETINE [Suspect]
     Active Substance: DULOXETINE
     Indication: ANXIETY
     Dosage: 1 AT BEDTIME
     Route: 048
     Dates: start: 20141001

REACTIONS (3)
  - Constipation [None]
  - Pain [None]
  - Headache [None]

NARRATIVE: CASE EVENT DATE: 20141101
